FAERS Safety Report 9535328 (Version 2)
Quarter: 2013Q3

REPORT INFORMATION
  Report Type: Report from Study
  Country: US (occurrence: US)
  Receive Date: 20130918
  Receipt Date: 20130927
  Transmission Date: 20140515
  Serious: Yes (Hospitalization, Other)
  Sender: FDA-Public Use
  Company Number: US-US-EMD SERONO, INC.-7237490

PATIENT
  Sex: Female
  Weight: 226 kg

DRUGS (2)
  1. REBIF [Suspect]
     Indication: MULTIPLE SCLEROSIS
     Route: 058
     Dates: start: 20050427
  2. ALEVE                              /00256202/ [Concomitant]
     Indication: PREMEDICATION

REACTIONS (5)
  - Large intestine perforation [Unknown]
  - Colostomy infection [Unknown]
  - Hypertension [Unknown]
  - Multiple sclerosis relapse [Unknown]
  - Weight decreased [Recovered/Resolved]
